FAERS Safety Report 7343033-8 (Version None)
Quarter: 2011Q1

REPORT INFORMATION
  Report Type: 
  Country: None (occurrence: None)
  Receive Date: 20110301
  Receipt Date: 20110216
  Transmission Date: 20110831
  Serious: Yes (Other)
  Sender: FDA-Public Use
  Company Number: 2011MA001573

PATIENT
  Age: 88 Year
  Sex: Female

DRUGS (8)
  1. LAXIDO [Concomitant]
  2. LEVOTHYROXINE SODIUM [Concomitant]
  3. ALENDRONIC ACID [Concomitant]
  4. ACETAMINOPHEN AND CODEINE PHOSPHATE [Concomitant]
  5. ZOPICLONE [Concomitant]
  6. PRIADEL [Concomitant]
  7. MIRTAZAPINE [Suspect]
     Dosage: 15 MG;QD;PO
     Route: 048
  8. DIAZEPAM [Concomitant]

REACTIONS (1)
  - HYPONATRAEMIA [None]
